FAERS Safety Report 7131458-5 (Version None)
Quarter: 2010Q4

REPORT INFORMATION
  Report Type: 
  Country: None (occurrence: None)
  Receive Date: 20101201
  Receipt Date: 20101124
  Transmission Date: 20110411
  Serious: Yes (Other)
  Sender: FDA-Public Use
  Company Number: FR-PFIZER INC-2010157010

PATIENT
  Age: 82 Year
  Sex: Female

DRUGS (1)
  1. XANAX [Suspect]
     Dosage: 0.25 MG, 1X/DAY

REACTIONS (2)
  - ANXIETY [None]
  - DELUSION [None]
